FAERS Safety Report 23138604 (Version 1)
Quarter: 2023Q4

REPORT INFORMATION
  Report Type: Spontaneous
  Country: US (occurrence: None)
  Receive Date: 20231101
  Receipt Date: 20231101
  Transmission Date: 20240110
  Serious: Yes (Life-Threatening, Hospitalization, Other)
  Sender: FDA-Public Use
  Company Number: None

PATIENT
  Age: 63 Year
  Sex: Female
  Weight: 88 kg

DRUGS (1)
  1. LUMASON [Suspect]
     Active Substance: SULFUR HEXAFLUORIDE
     Indication: Chest pain
     Dates: start: 20231026, end: 20231026

REACTIONS (11)
  - Abdominal pain upper [None]
  - Dizziness [None]
  - Hyperhidrosis [None]
  - Flushing [None]
  - Pallor [None]
  - Paraesthesia [None]
  - Paraesthesia [None]
  - Nausea [None]
  - Oxygen saturation decreased [None]
  - Electrocardiogram ST segment elevation [None]
  - Infusion related reaction [None]

NARRATIVE: CASE EVENT DATE: 20231026
